FAERS Safety Report 20908593 (Version 1)
Quarter: 2022Q2

REPORT INFORMATION
  Report Type: Spontaneous
  Country: IT (occurrence: IT)
  Receive Date: 20220603
  Receipt Date: 20220603
  Transmission Date: 20220721
  Serious: Yes (Other)
  Sender: FDA-Public Use
  Company Number: None

PATIENT
  Age: 65 Year
  Sex: Female
  Weight: 46 kg

DRUGS (4)
  1. FLUOROURACIL [Suspect]
     Active Substance: FLUOROURACIL
     Indication: Colon cancer
     Dosage: 417 MG , FREQUENCY TIME : 1 CYCLICAL , DURATION : 38 DAYS
     Route: 040
     Dates: start: 20220308, end: 20220415
  2. FLUOROURACIL [Suspect]
     Active Substance: FLUOROURACIL
     Dosage: 2836 MG , FREQUENCY TIME : 1 CYCLICAL , DURATION : 38 DAYS
     Route: 042
     Dates: start: 20220308, end: 20220415
  3. OXALIPLATIN [Suspect]
     Active Substance: OXALIPLATIN
     Indication: Colon cancer
     Dosage: 88.61 MG , FREQUENCY TIME : 1 CYCLICAL , DURATION : 38 DAYS
     Route: 042
     Dates: start: 20220308, end: 20220415
  4. VECTIBIX [Suspect]
     Active Substance: PANITUMUMAB
     Indication: Colon cancer
     Dosage: 274.9 MG , FREQUENCY TIME : 1 CYCLICAL , DURATION : 38 DAYS
     Route: 042
     Dates: start: 20220308, end: 20220415

REACTIONS (1)
  - Anaemia [Recovering/Resolving]

NARRATIVE: CASE EVENT DATE: 20220427
